FAERS Safety Report 6126015-3 (Version None)
Quarter: 2009Q1

REPORT INFORMATION
  Report Type: 
  Country: None (occurrence: None)
  Receive Date: 20090320
  Receipt Date: 20090313
  Transmission Date: 20090719
  Serious: Yes (Hospitalization)
  Sender: FDA-Public Use
  Company Number: US-SOLVAY-00209001492

PATIENT
  Age: 752 Month
  Sex: Male
  Weight: 118.18 kg

DRUGS (3)
  1. UNKNOWN CHOLESTEROL MEDICATION [Concomitant]
     Indication: BLOOD CHOLESTEROL INCREASED
     Dosage: DAILY DOSE:  UNKNOWN
     Route: 048
     Dates: start: 20090101
  2. ANDROGEL [Suspect]
     Indication: DRUG USE FOR UNKNOWN INDICATION
     Dosage: DAILY DOSE: 7.5 GRAM(S), VIA PUMP
     Route: 062
     Dates: start: 20070101, end: 20090201
  3. ANDROGEL [Suspect]
     Dosage: DAILY DOSE: 3.75 GRAM(S), VIA PUMP
     Route: 062
     Dates: start: 20090201

REACTIONS (2)
  - CARDIAC DISORDER [None]
  - POLYCYTHAEMIA [None]
